FAERS Safety Report 25872509 (Version 1)
Quarter: 2025Q4

REPORT INFORMATION
  Report Type: Spontaneous
  Country: CA (occurrence: CA)
  Receive Date: 20251002
  Receipt Date: 20251002
  Transmission Date: 20260117
  Serious: Yes (Hospitalization, Other)
  Sender: AMGEN
  Company Number: CA-AMGEN-CANSP2025191745

PATIENT
  Age: 40 Year
  Sex: Female

DRUGS (27)
  1. BEVACIZUMAB [Suspect]
     Active Substance: BEVACIZUMAB
     Indication: Squamous cell carcinoma of the cervix
     Dosage: UNK (SIX CYCLES)
     Route: 065
  2. BEVACIZUMAB [Suspect]
     Active Substance: BEVACIZUMAB
     Indication: Cervix carcinoma stage IV
     Dosage: UNK, Q3WK (SIX THREE-WEEKLY CYCLES)
     Route: 065
  3. RITUXIMAB [Suspect]
     Active Substance: RITUXIMAB
     Indication: Capillary leak syndrome
     Dosage: UNK
     Route: 065
     Dates: start: 2023
  4. RITUXIMAB [Suspect]
     Active Substance: RITUXIMAB
     Indication: Cytokine release syndrome
  5. PEMBROLIZUMAB [Concomitant]
     Active Substance: PEMBROLIZUMAB
     Indication: Squamous cell carcinoma of the cervix
     Dosage: UNK (SIX CYCLES)
  6. PEMBROLIZUMAB [Concomitant]
     Active Substance: PEMBROLIZUMAB
     Indication: Cervix carcinoma stage IV
     Dosage: UNK, Q3WK (SIX THREE-WEEKLY CYCLE)
  7. CISPLATIN [Concomitant]
     Active Substance: CISPLATIN
     Indication: Squamous cell carcinoma of the cervix
     Dosage: UNK (THREE CYCLES)
  8. CISPLATIN [Concomitant]
     Active Substance: CISPLATIN
     Indication: Cervix carcinoma stage IV
  9. CARBOPLATIN [Concomitant]
     Active Substance: CARBOPLATIN
     Indication: Squamous cell carcinoma of the cervix
     Dosage: UNK (THREE CYCLES)
  10. CARBOPLATIN [Concomitant]
     Active Substance: CARBOPLATIN
     Indication: Cervix carcinoma stage IV
  11. PACLITAXEL [Concomitant]
     Active Substance: PACLITAXEL
     Indication: Squamous cell carcinoma of the cervix
     Dosage: UNK (SIX CYCLES)
  12. PACLITAXEL [Concomitant]
     Active Substance: PACLITAXEL
     Indication: Cervix carcinoma stage IV
  13. LEVOTHYROXINE [Concomitant]
     Active Substance: LEVOTHYROXINE
     Indication: Thyroid disorder
     Dosage: UNK
  14. FUROSEMIDE [Concomitant]
     Active Substance: FUROSEMIDE
     Indication: Diuretic therapy
     Dosage: 20 MILLIGRAM, QID
     Route: 040
     Dates: start: 2023
  15. AMILORIDE [Concomitant]
     Active Substance: AMILORIDE
     Indication: Diuretic therapy
     Dosage: 10 MILLIGRAM, BID
     Dates: start: 2023
  16. LACTULOSE [Concomitant]
     Active Substance: LACTULOSE
     Indication: Product used for unknown indication
     Dosage: UNK
     Dates: start: 2023
  17. METHYLPREDNISOLONE [Concomitant]
     Active Substance: METHYLPREDNISOLONE
     Indication: Capillary leak syndrome
     Dosage: UNK
     Dates: start: 2023
  18. METHYLPREDNISOLONE [Concomitant]
     Active Substance: METHYLPREDNISOLONE
     Indication: Cytokine release syndrome
     Dosage: 1 GRAM, QD
  19. Immunoglobulin [Concomitant]
     Indication: Capillary leak syndrome
     Dosage: UNK
     Route: 040
     Dates: start: 2023
  20. Immunoglobulin [Concomitant]
     Indication: Cytokine release syndrome
     Dosage: UNK, QWK
     Route: 040
     Dates: start: 2023
  21. MYCOPHENOLATE MOFETIL [Concomitant]
     Active Substance: MYCOPHENOLATE MOFETIL
     Indication: Capillary leak syndrome
     Dosage: UNK
     Dates: start: 2023
  22. MYCOPHENOLATE MOFETIL [Concomitant]
     Active Substance: MYCOPHENOLATE MOFETIL
     Indication: Cytokine release syndrome
  23. OCTREOTIDE [Concomitant]
     Active Substance: OCTREOTIDE
     Indication: Ascites
     Dosage: UNK
     Dates: start: 2023
  24. AXITINIB [Concomitant]
     Active Substance: AXITINIB
     Indication: Capillary leak syndrome
     Dosage: 3 MILLIGRAM, BID
     Dates: start: 2023
  25. LANREOTIDE [Concomitant]
     Active Substance: LANREOTIDE
     Indication: Product used for unknown indication
     Dosage: 30 MILLIGRAM, QMO
     Dates: start: 2023
  26. ALBUMIN HUMAN [Concomitant]
     Active Substance: ALBUMIN HUMAN
     Indication: Product used for unknown indication
     Dosage: UNK, QWK
     Dates: start: 2023
  27. RUXOLITINIB [Concomitant]
     Active Substance: RUXOLITINIB
     Indication: Cytokine release syndrome
     Dosage: 20 MILLIGRAM, BID
     Dates: start: 2023

REACTIONS (5)
  - Disseminated intravascular coagulation [Unknown]
  - Cervix carcinoma recurrent [Unknown]
  - General physical health deterioration [Unknown]
  - Drug ineffective for unapproved indication [Unknown]
  - Off label use [Unknown]

NARRATIVE: CASE EVENT DATE: 20230101
